FAERS Safety Report 4967392-6 (Version None)
Quarter: 2006Q2

REPORT INFORMATION
  Report Type: 
  Country: None (occurrence: None)
  Receive Date: 20060407
  Receipt Date: 20060407
  Transmission Date: 20061013
  Serious: Yes (Other)
  Sender: FDA-Public Use
  Company Number: None

PATIENT
  Sex: Female

DRUGS (1)
  1. ALBUTEROL [Suspect]
     Dosage: 1 PUFF
     Route: 055
     Dates: start: 20060305, end: 20060305

REACTIONS (6)
  - NO REACTION ON PREVIOUS EXPOSURE TO DRUG [None]
  - ORAL DISCOMFORT [None]
  - ORAL MUCOSAL BLISTERING [None]
  - PHARYNGOLARYNGEAL PAIN [None]
  - STOMATITIS [None]
  - THROAT IRRITATION [None]
